FAERS Safety Report 13829396 (Version 1)
Quarter: 2017Q3

REPORT INFORMATION
  Report Type: Spontaneous
  Country: US (occurrence: US)
  Receive Date: 20170803
  Receipt Date: 20170803
  Transmission Date: 20171127
  Serious: No
  Sender: FDA-Public Use
  Company Number: None

PATIENT

DRUGS (2)
  1. FLUMAZENIL. [Suspect]
     Active Substance: FLUMAZENIL
     Dosage: MULTIPLE DOSE VIAL
     Route: 042
  2. VECURONIUM BROMIDE. [Suspect]
     Active Substance: VECURONIUM BROMIDE
     Dosage: SINGLE DOSE VIAL
     Route: 042

REACTIONS (1)
  - Product label confusion [None]
